FAERS Safety Report 9853413 (Version 2)
Quarter: 2014Q1

REPORT INFORMATION
  Report Type: Spontaneous
  Country: US (occurrence: US)
  Receive Date: 20140129
  Receipt Date: 20140129
  Transmission Date: 20141002
  Serious: Yes (Hospitalization)
  Sender: FDA-Public Use
  Company Number: US-GLAXOSMITHKLINE-A0789987A

PATIENT
  Sex: Male

DRUGS (6)
  1. AVANDIA [Suspect]
     Indication: DIABETES MELLITUS
     Dosage: 8MG PER DAY
     Route: 048
  2. GLYBURIDE [Concomitant]
  3. LISINOPRIL [Concomitant]
  4. METOPROLOL [Concomitant]
  5. ZOCOR [Concomitant]
  6. INSULIN [Concomitant]

REACTIONS (7)
  - Myocardial infarction [Not Recovered/Not Resolved]
  - Cardiac failure congestive [Unknown]
  - Cardiac disorder [Unknown]
  - Coronary artery bypass [Unknown]
  - Condition aggravated [Unknown]
  - Cardiac disorder [Unknown]
  - Cardiovascular disorder [Unknown]
